FAERS Safety Report 5887464-1 (Version None)
Quarter: 2008Q3

REPORT INFORMATION
  Report Type: 
  Country: None (occurrence: None)
  Receive Date: 20080918
  Receipt Date: 20080909
  Transmission Date: 20090109
  Serious: Yes (Other)
  Sender: FDA-Public Use
  Company Number: HQWYE971417AUG05

PATIENT
  Sex: Female

DRUGS (3)
  1. PREMPRO [Suspect]
     Indication: HORMONE REPLACEMENT THERAPY
     Dosage: UNSPECIFIED DOSE REGIMEN
     Route: 048
     Dates: start: 19810101, end: 20010101
  2. ESTRACE [Suspect]
  3. PREMARIN [Suspect]

REACTIONS (1)
  - BREAST CANCER METASTATIC [None]
